FAERS Safety Report 12422543 (Version 3)
Quarter: 2016Q2

REPORT INFORMATION
  Report Type: Report from Study
  Country: US (occurrence: US)
  Receive Date: 20160601
  Receipt Date: 20160614
  Transmission Date: 20160815
  Serious: Yes (Hospitalization)
  Sender: FDA-Public Use
  Company Number: US-ROCHE-1766183

PATIENT
  Age: 50 Year
  Sex: Female
  Weight: 50.7 kg

DRUGS (4)
  1. NAB-PACLITAXEL [Suspect]
     Active Substance: PACLITAXEL
     Indication: BREAST CANCER METASTATIC
     Dosage: DOSE PER PROTOCOL. THE MOST RECENT DOSE OF PACLITAXEL ALBUMIN PRIOR TO THE ONSET OF PNEUMONIA WAS ON
     Route: 042
     Dates: start: 20160427
  2. TEGRETOL [Concomitant]
     Active Substance: CARBAMAZEPINE
     Indication: PROPHYLAXIS
     Route: 048
     Dates: start: 20160303
  3. TYLENOL [Concomitant]
     Active Substance: ACETAMINOPHEN
     Indication: PAIN
     Route: 048
     Dates: start: 20160427
  4. ATEZOLIZUMAB [Suspect]
     Active Substance: ATEZOLIZUMAB
     Indication: BREAST CANCER METASTATIC
     Dosage: FIXED PER PROTOCOL. ON 11/MAY/2016, THE PATIENT RECEIVED THE MOST RECENT DOSE OF ATEZOLIZUMAB AT 800
     Route: 042
     Dates: start: 20160511

REACTIONS (1)
  - Pneumonia [Recovered/Resolved]

NARRATIVE: CASE EVENT DATE: 20160526
